FAERS Safety Report 13794574 (Version 2)
Quarter: 2017Q3

REPORT INFORMATION
  Report Type: Spontaneous
  Country: US (occurrence: US)
  Receive Date: 20170726
  Receipt Date: 20170906
  Transmission Date: 20171127
  Serious: No
  Sender: FDA-Public Use
  Company Number: US-PFIZER INC-2017323573

PATIENT
  Age: 68 Year
  Sex: Female
  Weight: 108 kg

DRUGS (2)
  1. LYRICA [Suspect]
     Active Substance: PREGABALIN
     Dosage: 100 MG, DAILY, ^TAKE AT NIGHT^
     Route: 048
  2. LYRICA [Suspect]
     Active Substance: PREGABALIN
     Indication: NEUROPATHY PERIPHERAL
     Dosage: 50 MG, DAILY, ^FOR 3 DAYS^
     Route: 048
     Dates: start: 201707

REACTIONS (2)
  - Pain in extremity [Unknown]
  - Burning sensation [Unknown]
